FAERS Safety Report 5843542-4 (Version None)
Quarter: 2008Q3

REPORT INFORMATION
  Report Type: 
  Country: None (occurrence: None)
  Receive Date: 20080812
  Receipt Date: 20080812
  Transmission Date: 20090109
  Serious: Yes (Hospitalization)
  Sender: FDA-Public Use
  Company Number: None

PATIENT
  Age: 44 Year
  Sex: Male

DRUGS (2)
  1. BACLOFEN [Suspect]
     Dosage: 10 MG TID PO
     Route: 048
     Dates: start: 20080229, end: 20080801
  2. GABAPENTIN [Suspect]
     Dosage: 300 MG TID PO
     Route: 048
     Dates: start: 20080229, end: 20080801

REACTIONS (2)
  - MENTAL STATUS CHANGES [None]
  - TREATMENT NONCOMPLIANCE [None]
